FAERS Safety Report 18419893 (Version 1)
Quarter: 2020Q4

REPORT INFORMATION
  Report Type: Other
  Country: CA (occurrence: CA)
  Receive Date: 20201023
  Receipt Date: 20201023
  Transmission Date: 20210114
  Serious: Yes (Hospitalization, Other)
  Sender: FDA-Public Use
  Company Number: CA-APOTEX-2020AP019978

PATIENT
  Age: 85 Year
  Sex: Male
  Weight: 70 kg

DRUGS (1)
  1. CLOPIDOGREL [Suspect]
     Active Substance: CLOPIDOGREL BISULFATE
     Indication: CARDIOVASCULAR EVENT PROPHYLAXIS
     Dosage: 75.0 MILLIGRAM, QD
     Route: 048

REACTIONS (3)
  - Haemoglobin decreased [Recovered/Resolved]
  - Infection [Recovered/Resolved]
  - Internal haemorrhage [Recovered/Resolved]
